FAERS Safety Report 4485878-8 (Version None)
Quarter: 2004Q4

REPORT INFORMATION
  Report Type: 
  Country: None (occurrence: None)
  Receive Date: 20041026
  Receipt Date: 20040923
  Transmission Date: 20050328
  Serious: Yes (Other)
  Sender: FDA-Public Use
  Company Number: PHEH2004US10249

PATIENT
  Age: 70 Year
  Sex: Male

DRUGS (5)
  1. ZELNORM [Suspect]
     Indication: CONSTIPATION
     Dosage: 6 MG, BID
     Route: 048
     Dates: start: 20040922, end: 20040930
  2. ZELNORM [Suspect]
     Dosage: UNK, QHS
     Route: 048
     Dates: end: 20041016
  3. ACIPHEX [Concomitant]
     Indication: GASTROOESOPHAGEAL REFLUX DISEASE
  4. METAMUCIL ^SEARLE^ [Concomitant]
  5. ATENOLOL [Concomitant]

REACTIONS (6)
  - ABDOMINAL PAIN [None]
  - ASTHENIA [None]
  - DIARRHOEA [None]
  - DIZZINESS [None]
  - LOOSE STOOLS [None]
  - NAUSEA [None]
